FAERS Safety Report 5703243-X (Version None)
Quarter: 2008Q2

REPORT INFORMATION
  Report Type: 
  Country: None (occurrence: None)
  Receive Date: 20080411
  Receipt Date: 20080404
  Transmission Date: 20081010
  Serious: Yes (Hospitalization)
  Sender: FDA-Public Use
  Company Number: US-GENENTECH-253853

PATIENT
  Sex: Female

DRUGS (2)
  1. BEVACIZUMAB [Suspect]
     Indication: BREAST CANCER
     Dosage: 560 MG, UNK
     Route: 042
     Dates: start: 20070129
  2. ABRAXANE [Suspect]
     Indication: BREAST CANCER
     Dosage: 195 MG, UNK
     Route: 042
     Dates: start: 20070129

REACTIONS (1)
  - PNEUMONITIS CHEMICAL [None]
